FAERS Safety Report 7682772-6 (Version None)
Quarter: 2011Q3

REPORT INFORMATION
  Report Type: 
  Country: None (occurrence: None)
  Receive Date: 20110815
  Receipt Date: 20100803
  Transmission Date: 20111222
  Serious: No
  Sender: FDA-Public Use
  Company Number: US-TYCO HEALTHCARE/MALLINCKRODT-T201001556

PATIENT
  Sex: Female

DRUGS (2)
  1. PAMELOR [Suspect]
     Dosage: 25 MG, TOOK ONE SINGLE DOSE
     Route: 048
     Dates: start: 20100617, end: 20100618
  2. LISINOPRIL [Concomitant]
     Indication: HYPERTENSION
     Dosage: 20 MG, QD
     Route: 048

REACTIONS (6)
  - SKIN DISCOLOURATION [None]
  - DRY SKIN [None]
  - PARAESTHESIA [None]
  - HEART RATE IRREGULAR [None]
  - RASH MACULAR [None]
  - PALPITATIONS [None]
